FAERS Safety Report 8777870 (Version 3)
Quarter: 2012Q4

REPORT INFORMATION
  Report Type: 
  Country: TH (occurrence: TH)
  Receive Date: 20120912
  Receipt Date: 20121016
  Transmission Date: 20130627
  Serious: Yes (Other)
  Sender: FDA-Public Use
  Company Number: PHHY2012TH078994

PATIENT
  Age: 47 Year
  Sex: Male

DRUGS (2)
  1. CERTICAN [Suspect]
     Dates: start: 2009
  2. CORDARONE [Concomitant]
     Indication: ATRIAL FIBRILLATION
     Dosage: 2 DF, BID

REACTIONS (6)
  - Pulmonary haemorrhage [Recovering/Resolving]
  - Haemoptysis [Recovering/Resolving]
  - Dyspnoea [Recovering/Resolving]
  - Atrial fibrillation [Recovering/Resolving]
  - Anuria [Recovering/Resolving]
  - Diarrhoea [Recovering/Resolving]
